FAERS Safety Report 9814687 (Version 2)
Quarter: 2014Q1

REPORT INFORMATION
  Report Type: Spontaneous
  Country: US (occurrence: US)
  Receive Date: 20140113
  Receipt Date: 20140210
  Transmission Date: 20141002
  Serious: Yes (Other)
  Sender: FDA-Public Use
  Company Number: CHPA2014US000527

PATIENT
  Age: 83 Year
  Sex: Female

DRUGS (3)
  1. EX-LAX MAX STR LAX PILLS SENNA [Suspect]
     Indication: CONSTIPATION
     Dosage: 2 DF, QD
     Route: 048
  2. EX-LAX REG STR CHOCOLATED LAX PCS SEN [Suspect]
  3. STOOL SOFTENER [Concomitant]
     Indication: CONSTIPATION

REACTIONS (6)
  - Drug dependence [Unknown]
  - Glaucoma [Recovering/Resolving]
  - Gastrointestinal disorder [Unknown]
  - Bowel movement irregularity [Unknown]
  - Retching [Unknown]
  - Incorrect drug administration duration [Unknown]
